FAERS Safety Report 13148349 (Version 1)
Quarter: 2017Q1

REPORT INFORMATION
  Report Type: Spontaneous
  Country: US (occurrence: US)
  Receive Date: 20170125
  Receipt Date: 20170125
  Transmission Date: 20170428
  Serious: No
  Sender: FDA-Public Use
  Company Number: US-009507513-1701USA004605

PATIENT
  Age: 20 Year
  Sex: Female
  Weight: 63.49 kg

DRUGS (1)
  1. NEXPLANON [Suspect]
     Active Substance: ETONOGESTREL
     Indication: CONTRACEPTION
     Dosage: 1 IMPLANT IN LEFT ARM, FOR FOUR YEARS
     Route: 059
     Dates: start: 20161206

REACTIONS (3)
  - Circumstance or information capable of leading to device use error [Unknown]
  - Epistaxis [Unknown]
  - Acne [Unknown]

NARRATIVE: CASE EVENT DATE: 20161206
